FAERS Safety Report 7669506-6 (Version None)
Quarter: 2011Q3

REPORT INFORMATION
  Report Type: 
  Country: None (occurrence: None)
  Receive Date: 20110808
  Receipt Date: 20110804
  Transmission Date: 20111222
  Serious: Yes (Other)
  Sender: FDA-Public Use
  Company Number: FR-MERCK-1108FRA00029

PATIENT
  Age: 86 Year
  Sex: Male

DRUGS (8)
  1. DEGARELIX ACETATE [Suspect]
     Route: 058
     Dates: start: 20110209, end: 20110209
  2. ESOMEPRAZOLE MAGNESIUM [Concomitant]
     Route: 065
  3. ASPIRIN LYSINE [Concomitant]
     Route: 065
  4. POLYETHYLENE GLYCOL 4000 [Concomitant]
     Route: 065
     Dates: start: 20101101
  5. FOSAMAX [Suspect]
     Route: 048
     Dates: start: 20110209
  6. OXAZEPAM [Concomitant]
     Route: 065
     Dates: start: 20101101
  7. DONEPEZIL HYDROCHLORIDE [Concomitant]
     Route: 065
  8. DEGARELIX ACETATE [Suspect]
     Route: 058
     Dates: start: 20110320, end: 20110320

REACTIONS (1)
  - DEEP VEIN THROMBOSIS [None]
